FAERS Safety Report 8599253-8 (Version None)
Quarter: 2012Q3

REPORT INFORMATION
  Report Type: 
  Country: None (occurrence: None)
  Receive Date: 20120816
  Receipt Date: 20120206
  Transmission Date: 20120928
  Serious: No
  Sender: FDA-Public Use
  Company Number: US-AMGEN-USASP2012007699

PATIENT
  Age: 56 Year
  Sex: Female

DRUGS (5)
  1. CIPROFLOXACIN HCL [Concomitant]
  2. NEUPOGEN [Suspect]
     Indication: MULTIPLE MYELOMA
     Dates: start: 20120107
  3. RIFAMPIN [Concomitant]
  4. ETOPOSIDE [Concomitant]
  5. ZOFRAN [Concomitant]

REACTIONS (1)
  - ARTHRALGIA [None]
